FAERS Safety Report 5391990-1 (Version None)
Quarter: 2007Q3

REPORT INFORMATION
  Report Type: 
  Country: None (occurrence: None)
  Receive Date: 20070720
  Receipt Date: 20070711
  Transmission Date: 20080115
  Serious: Yes (Other)
  Sender: FDA-Public Use
  Company Number: US-JNJFOC-20070702930

PATIENT
  Sex: Male
  Weight: 88.45 kg

DRUGS (13)
  1. DURAGESIC-100 [Suspect]
     Indication: PAIN
     Route: 062
  2. POTASSIUM CHLORIDE [Concomitant]
     Indication: NUTRITIONAL SUPPORT
     Route: 048
  3. NIASPAN [Concomitant]
     Indication: VITAMIN SUPPLEMENTATION
     Dosage: 1000MG TABLET
     Route: 048
  4. TRICOR [Concomitant]
     Indication: CARDIAC DISORDER
     Route: 048
  5. NEXIUM [Concomitant]
     Indication: GASTROOESOPHAGEAL REFLUX DISEASE
     Route: 048
  6. LASIX [Concomitant]
     Indication: FLUID RETENTION
     Route: 048
  7. LOPRESSOR [Concomitant]
     Indication: BLOOD PRESSURE
     Route: 048
  8. BUSPAR [Concomitant]
     Indication: ANXIETY
     Route: 048
  9. METFORMIN HCL [Concomitant]
     Indication: DIABETES MELLITUS
     Route: 048
  10. ACTOS [Concomitant]
     Indication: DIABETES MELLITUS
     Route: 048
  11. VASOTEC [Concomitant]
     Indication: BLOOD PRESSURE
     Route: 048
  12. OXYCODONE HCL [Concomitant]
     Indication: BREAKTHROUGH PAIN
     Route: 048
  13. ASPIRIN [Concomitant]
     Indication: CARDIAC DISORDER
     Route: 048

REACTIONS (8)
  - BLOOD CHOLESTEROL INCREASED [None]
  - DEPRESSION [None]
  - DRY EYE [None]
  - INSOMNIA [None]
  - MUSCLE SPASMS [None]
  - OEDEMA PERIPHERAL [None]
  - PROSTATIC DISORDER [None]
  - WRONG TECHNIQUE IN DRUG USAGE PROCESS [None]
